FAERS Safety Report 24022318 (Version 1)
Quarter: 2024Q2

REPORT INFORMATION
  Report Type: Report from Study
  Country: CA (occurrence: CA)
  Receive Date: 20240627
  Receipt Date: 20240627
  Transmission Date: 20240716
  Serious: No
  Sender: FDA-Public Use
  Company Number: CA-ROCHE-3498127

PATIENT
  Sex: Male

DRUGS (1)
  1. ROZLYTREK [Suspect]
     Active Substance: ENTRECTINIB
     Indication: Non-small cell lung cancer
     Dosage: MORE DOSAGE INFORMATION IS 600 MG ONCE DAILY
     Route: 048
     Dates: start: 20230214

REACTIONS (3)
  - Full blood count abnormal [Unknown]
  - Chronic kidney disease [Unknown]
  - Blood calcium decreased [Unknown]
